FAERS Safety Report 13280028 (Version 20)
Quarter: 2020Q1

REPORT INFORMATION
  Report Type: Spontaneous
  Country: CA (occurrence: CA)
  Receive Date: 20170301
  Receipt Date: 20200327
  Transmission Date: 20200409
  Serious: Yes (Hospitalization, Other)
  Sender: FDA-Public Use
  Company Number: CA-ROCHE-1899092

PATIENT
  Age: 88 Year
  Sex: Male

DRUGS (25)
  1. INFLUENZA VACCINE [Concomitant]
     Active Substance: INFLUENZA VIRUS VACCINE
     Indication: PRODUCT USED FOR UNKNOWN INDICATION
     Dosage: UNK
     Route: 065
     Dates: start: 20171018
  2. XOLAIR [Suspect]
     Active Substance: OMALIZUMAB
     Dosage: UNK?POWDER AND SOLVENT FOR SOLUTION FOR INJECTION
     Route: 058
     Dates: start: 20170829
  3. XOLAIR [Suspect]
     Active Substance: OMALIZUMAB
     Dosage: UNK?POWDER AND SOLVENT FOR SOLUTION FOR INJECTION
     Route: 058
     Dates: start: 20171205
  4. XOLAIR [Suspect]
     Active Substance: OMALIZUMAB
     Route: 058
     Dates: start: 20200122
  5. XOLAIR [Suspect]
     Active Substance: OMALIZUMAB
     Dosage: UNK?POWDER AND SOLVENT FOR SOLUTION FOR INJECTION
     Route: 058
     Dates: start: 20170803
  6. XOLAIR [Suspect]
     Active Substance: OMALIZUMAB
     Dosage: UNK?POWDER AND SOLVENT FOR SOLUTION FOR INJECTION
     Route: 058
     Dates: start: 20170912
  7. SALBUTAMOL [Concomitant]
     Active Substance: ALBUTEROL
     Indication: PRODUCT USED FOR UNKNOWN INDICATION
     Dosage: UNK UNK, BID
     Route: 055
  8. XOLAIR [Suspect]
     Active Substance: OMALIZUMAB
     Route: 058
     Dates: start: 20200206
  9. IPRATROPIUM [Concomitant]
     Active Substance: IPRATROPIUM
     Indication: PRODUCT USED FOR UNKNOWN INDICATION
     Dosage: UNK UNK, BID
     Route: 055
  10. XOLAIR [Suspect]
     Active Substance: OMALIZUMAB
     Dosage: UNK?POWDER AND SOLVENT FOR SOLUTION FOR INJECTION
     Route: 058
     Dates: start: 20170207
  11. XOLAIR [Suspect]
     Active Substance: OMALIZUMAB
     Dosage: UNK?POWDER AND SOLVENT FOR SOLUTION FOR INJECTION
     Route: 058
     Dates: start: 20171025
  12. XOLAIR [Suspect]
     Active Substance: OMALIZUMAB
     Dosage: UNK?POWDER AND SOLVENT FOR SOLUTION FOR INJECTION
     Route: 058
     Dates: start: 20171107
  13. XOLAIR [Suspect]
     Active Substance: OMALIZUMAB
     Dosage: UNK?POWDER AND SOLVENT FOR SOLUTION FOR INJECTION
     Route: 058
     Dates: start: 20180105
  14. PREDNISONE. [Concomitant]
     Active Substance: PREDNISONE
     Dosage: UNK, QMO
     Route: 065
  15. XOLAIR [Suspect]
     Active Substance: OMALIZUMAB
     Dosage: UNK?POWDER AND SOLVENT FOR SOLUTION FOR INJECTION
     Route: 058
     Dates: start: 20170428
  16. XOLAIR [Suspect]
     Active Substance: OMALIZUMAB
     Route: 058
     Dates: start: 20191227
  17. XOLAIR [Suspect]
     Active Substance: OMALIZUMAB
     Route: 058
     Dates: start: 20200218
  18. PREDNISONE. [Concomitant]
     Active Substance: PREDNISONE
     Indication: PRODUCT USED FOR UNKNOWN INDICATION
     Dosage: (2 COURSES)
     Route: 065
  19. XOLAIR [Suspect]
     Active Substance: OMALIZUMAB
     Route: 058
     Dates: start: 20180202
  20. XOLAIR [Suspect]
     Active Substance: OMALIZUMAB
     Route: 058
     Dates: start: 20200108
  21. XOLAIR [Suspect]
     Active Substance: OMALIZUMAB
     Indication: ASTHMA
     Route: 058
     Dates: start: 20161103
  22. XOLAIR [Suspect]
     Active Substance: OMALIZUMAB
     Route: 058
     Dates: start: 20180119
  23. VENTOLIN [Concomitant]
     Active Substance: ALBUTEROL SULFATE
     Indication: PRODUCT USED FOR UNKNOWN INDICATION
     Route: 065
  24. XOLAIR [Suspect]
     Active Substance: OMALIZUMAB
     Dosage: UNK?POWDER AND SOLVENT FOR SOLUTION FOR INJECTION
     Route: 058
     Dates: start: 20171010
  25. XOLAIR [Suspect]
     Active Substance: OMALIZUMAB
     Route: 058
     Dates: start: 20180301

REACTIONS (14)
  - Rales [Recovering/Resolving]
  - Peripheral swelling [Unknown]
  - Hypoventilation [Recovering/Resolving]
  - Fall [Unknown]
  - Cough [Not Recovered/Not Resolved]
  - Erythema [Unknown]
  - Dyspnoea exertional [Recovered/Resolved]
  - Wheezing [Recovering/Resolving]
  - Furuncle [Unknown]
  - Mucosal discolouration [Recovered/Resolved]
  - Myocardial infarction [Unknown]
  - Internal haemorrhage [Unknown]
  - Blood pressure decreased [Unknown]
  - Injection site pain [Unknown]

NARRATIVE: CASE EVENT DATE: 2017
